FAERS Safety Report 12162845 (Version 2)
Quarter: 2016Q1

REPORT INFORMATION
  Report Type: Spontaneous
  Country: JP (occurrence: JP)
  Receive Date: 20160309
  Receipt Date: 20160315
  Transmission Date: 20160526
  Serious: Yes (Hospitalization, Other)
  Sender: FDA-Public Use
  Company Number: JP-PFIZER INC-2016143390

PATIENT
  Age: 84 Year
  Sex: Female

DRUGS (11)
  1. AMLODIPINE [Concomitant]
     Active Substance: AMLODIPINE BESYLATE
     Dosage: UNK
  2. OMEPRAZOLE. [Concomitant]
     Active Substance: OMEPRAZOLE
     Dosage: UNK
  3. NOVOLIN [Concomitant]
     Active Substance: INSULIN HUMAN
     Dosage: UNK
  4. TOVIAZ [Suspect]
     Active Substance: FESOTERODINE FUMARATE
     Indication: URINARY INCONTINENCE
  5. BAYASPIRIN [Concomitant]
     Active Substance: ASPIRIN
     Dosage: UNK
  6. MUCOSOLVAN [Concomitant]
     Active Substance: AMBROXOL HYDROCHLORIDE
     Dosage: UNK
  7. WARFARIN [Concomitant]
     Active Substance: WARFARIN
  8. TOVIAZ [Suspect]
     Active Substance: FESOTERODINE FUMARATE
     Indication: POLLAKIURIA
     Dosage: UNK
     Route: 048
     Dates: start: 20160115, end: 20160205
  9. MICARDIS [Concomitant]
     Active Substance: TELMISARTAN
     Dosage: UNK
  10. NASONEX [Concomitant]
     Active Substance: MOMETASONE FUROATE
     Dosage: UNK
  11. LIVOSTIN [Concomitant]
     Active Substance: LEVOCABASTINE HYDROCHLORIDE
     Dosage: UNK

REACTIONS (7)
  - Urinary retention [Recovering/Resolving]
  - Thirst [Recovering/Resolving]
  - Pleural effusion [Recovering/Resolving]
  - Constipation [Recovering/Resolving]
  - Pulmonary congestion [Recovering/Resolving]
  - Face oedema [Recovering/Resolving]
  - Dyspnoea [Recovering/Resolving]

NARRATIVE: CASE EVENT DATE: 2016
